FAERS Safety Report 4734540-2 (Version None)
Quarter: 2005Q3

REPORT INFORMATION
  Report Type: 
  Country: None (occurrence: None)
  Receive Date: 20050802
  Receipt Date: 20050721
  Transmission Date: 20060218
  Serious: Yes (Hospitalization)
  Sender: FDA-Public Use
  Company Number: 198200

PATIENT
  Age: 31 Year
  Sex: Female

DRUGS (3)
  1. AVONEX [Suspect]
     Indication: MULTIPLE SCLEROSIS
     Dosage: IM
     Route: 030
     Dates: start: 20031001
  2. PAXIL [Concomitant]
  3. WLLBUTRIN [Concomitant]

REACTIONS (4)
  - COORDINATION ABNORMAL [None]
  - DEHYDRATION [None]
  - FALL [None]
  - HEADACHE [None]
